FAERS Safety Report 6255975-5 (Version None)
Quarter: 2009Q3

REPORT INFORMATION
  Report Type: 
  Country: None (occurrence: None)
  Receive Date: 20090706
  Receipt Date: 20090630
  Transmission Date: 20100115
  Serious: Yes (Hospitalization)
  Sender: FDA-Public Use
  Company Number: FR-BRISTOL-MYERS SQUIBB COMPANY-14687685

PATIENT
  Age: 90 Year
  Sex: Female

DRUGS (13)
  1. IRBESARTAN AND HYDROCHLOROTHIAZIDE [Suspect]
     Dates: start: 20080301, end: 20090215
  2. PAROXETINE HCL [Suspect]
     Dates: start: 20080301, end: 20090216
  3. LORAZEPAM [Suspect]
     Dates: start: 20080301, end: 20090216
  4. LANZOR [Concomitant]
     Dates: start: 20080301
  5. ZANIDIP [Concomitant]
     Dates: start: 20080301
  6. TOPAL [Concomitant]
     Dates: start: 20080301
  7. TRIMETAZIDINE [Concomitant]
     Dates: start: 20080301
  8. EFFERALGAN [Concomitant]
     Indication: COUGH
  9. EFFERALGAN [Concomitant]
     Indication: PYREXIA
  10. SURBRONC [Concomitant]
     Indication: COUGH
  11. SURBRONC [Concomitant]
     Indication: PYREXIA
  12. AMOXICILLIN [Concomitant]
     Indication: COUGH
  13. AMOXICILLIN [Concomitant]
     Indication: PYREXIA

REACTIONS (8)
  - COUGH [None]
  - GLOSSITIS [None]
  - HYPOCALCAEMIA [None]
  - HYPOCHLORAEMIA [None]
  - HYPOKALAEMIA [None]
  - HYPONATRAEMIA [None]
  - OROPHARYNGEAL CANDIDIASIS [None]
  - PYREXIA [None]
